FAERS Safety Report 4757706-4 (Version None)
Quarter: 2005Q3

REPORT INFORMATION
  Report Type: 
  Country: None (occurrence: None)
  Receive Date: 20050829
  Receipt Date: 20050816
  Transmission Date: 20060218
  Serious: Yes (Other)
  Sender: FDA-Public Use
  Company Number: 2005116706

PATIENT
  Age: 72 Year
  Sex: Female
  Weight: 54.4316 kg

DRUGS (2)
  1. ZOLOFT [Suspect]
     Indication: HEADACHE
     Dosage: 50 MG (50 MG, DAILY), UNKNOWN
     Route: 065
     Dates: start: 20040101
  2. FOSAMAX [Concomitant]

REACTIONS (6)
  - AMNESIA [None]
  - CEREBRAL HAEMORRHAGE [None]
  - DEMENTIA [None]
  - GAMMOPATHY [None]
  - HALLUCINATION, AUDITORY [None]
  - HALLUCINATION, VISUAL [None]
